FAERS Safety Report 13868894 (Version 1)
Quarter: 2017Q3

REPORT INFORMATION
  Report Type: Spontaneous
  Country: CA (occurrence: CA)
  Receive Date: 20170815
  Receipt Date: 20170815
  Transmission Date: 20171127
  Serious: Yes (Other)
  Sender: FDA-Public Use
  Company Number: CA-ORION CORPORATION ORION PHARMA-TREX2017-2453

PATIENT
  Age: 68 Year
  Sex: Female

DRUGS (5)
  1. ORENCIA [Suspect]
     Active Substance: ABATACEPT
     Route: 065
  2. HYDROXYCHLOROQUINE [Suspect]
     Active Substance: HYDROXYCHLOROQUINE
     Route: 065
  3. METHOTREXATE (TRADE NAME UNKNOWN) [Suspect]
     Active Substance: METHOTREXATE
     Indication: RHEUMATOID ARTHRITIS
     Route: 065
  4. ENBREL [Suspect]
     Active Substance: ETANERCEPT
     Indication: RHEUMATOID ARTHRITIS
     Route: 065
  5. REMICADE [Suspect]
     Active Substance: INFLIXIMAB
     Route: 065

REACTIONS (14)
  - Red blood cell sedimentation rate abnormal [Unknown]
  - Urinary tract infection [Unknown]
  - C-reactive protein abnormal [Unknown]
  - Synovitis [Unknown]
  - Infection [Unknown]
  - Pruritus [Unknown]
  - Bronchitis [Unknown]
  - Arthritis [Unknown]
  - Drug intolerance [Unknown]
  - Psoriasis [Unknown]
  - Chronic sinusitis [Unknown]
  - Nausea [Unknown]
  - Monocytosis [Unknown]
  - Neutropenia [Unknown]
